FAERS Safety Report 6241513-X (Version None)
Quarter: 2009Q2

REPORT INFORMATION
  Report Type: 
  Country: None (occurrence: None)
  Receive Date: 20090623
  Receipt Date: 20030901
  Transmission Date: 20091009
  Serious: Yes (Hospitalization, Disabling)
  Sender: FDA-Public Use
  Company Number: ES-ROCHE-346232

PATIENT
  Sex: Male
  Weight: 68.6 kg

DRUGS (34)
  1. DACLIZUMAB [Suspect]
     Route: 042
     Dates: start: 20030403
  2. DACLIZUMAB [Suspect]
     Route: 042
     Dates: start: 20030416
  3. MYCOPHENOLATE MOFETIL [Suspect]
     Dosage: DRUG: MYCOPHENOLATE
     Route: 048
     Dates: start: 20030403, end: 20030403
  4. MYCOPHENOLATE MOFETIL [Suspect]
     Route: 048
     Dates: start: 20030404
  5. MYCOPHENOLATE MOFETIL [Suspect]
     Route: 048
     Dates: start: 20030421
  6. MYCOPHENOLATE MOFETIL [Suspect]
     Dosage: DRUG: MYCOPHENOLATE
     Route: 048
     Dates: start: 20030828, end: 20030830
  7. CYCLOSPORINE [Suspect]
     Dosage: DRUG: CYCLOSPORINE
     Route: 048
     Dates: start: 20030404
  8. CYCLOSPORINE [Suspect]
     Route: 048
     Dates: start: 20030512, end: 20030805
  9. CYCLOSPORINE [Suspect]
     Dosage: DRUG: CYCLOSPORINE
     Route: 048
     Dates: start: 20030403, end: 20030403
  10. SIROLIMUS [Suspect]
     Dosage: DRUG: RAPAMICINE
     Route: 048
     Dates: start: 20030805
  11. SIROLIMUS [Suspect]
     Route: 048
     Dates: start: 20030807
  12. SIROLIMUS [Suspect]
     Route: 048
     Dates: start: 20030916
  13. METHYLPREDNISOLONE [Suspect]
     Dosage: DRUG: MERHYLPREDNISOLONE; FORM: VIAL
     Route: 048
     Dates: start: 20030403, end: 20030403
  14. METHYLPREDNISOLONE [Suspect]
     Route: 048
     Dates: start: 20030404, end: 20030405
  15. PREDNISONE [Suspect]
     Route: 048
     Dates: start: 20030331
  16. PREDNISONE [Suspect]
     Route: 048
     Dates: start: 20030428
  17. PREDNISONE [Suspect]
     Route: 048
     Dates: start: 20030616
  18. PREDNISONE [Suspect]
     Route: 048
     Dates: start: 20030922
  19. PREDNISONE [Suspect]
     Route: 048
     Dates: start: 20031119
  20. PREDNISONE [Suspect]
     Route: 048
     Dates: start: 20031217
  21. PREDNISONE [Suspect]
     Route: 048
     Dates: start: 20030405
  22. AMLODIPINE [Concomitant]
     Route: 048
     Dates: start: 20030404
  23. RANITIDINE [Concomitant]
     Route: 048
     Dates: start: 20030414
  24. ASPIRIN [Concomitant]
     Route: 048
     Dates: start: 20030414
  25. ACYCLOVIR [Concomitant]
     Route: 048
     Dates: start: 20030415, end: 20030704
  26. ATORVASTATIN CALCIUM [Concomitant]
     Route: 048
     Dates: start: 20030808
  27. ATORVASTATIN CALCIUM [Concomitant]
     Route: 048
     Dates: end: 20030830
  28. CEFOXITIN [Concomitant]
     Dosage: FORM: VIAL
     Route: 042
     Dates: start: 20030408, end: 20030414
  29. GANCICLOVIR [Concomitant]
     Dosage: FORM: VIAL
     Route: 042
     Dates: start: 20030404, end: 20030415
  30. GANCICLOVIR [Concomitant]
     Route: 042
     Dates: start: 20030830, end: 20030830
  31. GANCICLOVIR [Concomitant]
     Route: 042
     Dates: end: 20030916
  32. NYSTATIN [Concomitant]
     Route: 048
     Dates: start: 20030404, end: 20030415
  33. SULFAMETHOXAZOLE AND TRIMETHOPRIM [Concomitant]
     Dosage: DRUG: TRIMETHOPRIM SULFAMETHOXAZOLE
     Route: 048
     Dates: start: 20030404
  34. SULFAMETHOXAZOLE AND TRIMETHOPRIM [Concomitant]
     Dosage: DRUG: TRIMETHOPRIM SULFAMETHOXAZOLE
     Route: 048
     Dates: end: 20031119

REACTIONS (5)
  - ANGIOPATHY [None]
  - CYTOMEGALOVIRUS INFECTION [None]
  - PNEUMONIA BACTERIAL [None]
  - PNEUMONIA STREPTOCOCCAL [None]
  - RENAL FAILURE ACUTE [None]
